FAERS Safety Report 6937707-8 (Version None)
Quarter: 2010Q3

REPORT INFORMATION
  Report Type: 
  Country: None (occurrence: None)
  Receive Date: 20100820
  Receipt Date: 20100820
  Transmission Date: 20110219
  Serious: No
  Sender: FDA-Public Use
  Company Number: None

PATIENT
  Age: 54 Year
  Sex: Male
  Weight: 72.7 kg

DRUGS (1)
  1. MOTRIN IB [Suspect]
     Indication: HEADACHE
     Dosage: 400 MG 1X ORAL
     Route: 048
     Dates: start: 20100725, end: 20100803

REACTIONS (1)
  - DIARRHOEA [None]
